FAERS Safety Report 8506010-7 (Version None)
Quarter: 2012Q3

REPORT INFORMATION
  Report Type: 
  Country: None (occurrence: None)
  Receive Date: 20120712
  Receipt Date: 20120706
  Transmission Date: 20120928
  Serious: Yes (Other)
  Sender: FDA-Public Use
  Company Number: DE-GLAXOSMITHKLINE-D0076267A

PATIENT

DRUGS (7)
  1. METOPROLOL TARTRATE [Concomitant]
     Route: 048
  2. CAPTOHEXAL [Concomitant]
     Route: 048
  3. VOTRIENT [Suspect]
     Dosage: 200MG PER DAY
     Route: 048
     Dates: start: 20120522, end: 20120530
  4. CARBAMAZEPINE [Concomitant]
     Dosage: 200MG UNKNOWN
     Route: 048
  5. ASPIRIN [Concomitant]
     Dosage: 100MG UNKNOWN
     Route: 048
  6. PANTOPRAZOLE [Concomitant]
     Route: 048
  7. SIMVASTATIN [Concomitant]
     Route: 048

REACTIONS (1)
  - BRAIN STEM INFARCTION [None]
